FAERS Safety Report 21503648 (Version 1)
Quarter: 2022Q4

REPORT INFORMATION
  Report Type: Spontaneous
  Country: US (occurrence: None)
  Receive Date: 20221024
  Receipt Date: 20221024
  Transmission Date: 20230113
  Serious: Yes (Hospitalization)
  Sender: FDA-Public Use
  Company Number: None

PATIENT
  Age: 66 Year
  Sex: Female
  Weight: 69.99 kg

DRUGS (11)
  1. KISQALI [Suspect]
     Active Substance: RIBOCICLIB
     Indication: Breast cancer female
     Dosage: 600MG  21D ON 7D OFF ORAL?
     Route: 048
     Dates: start: 202209
  2. ARMIDEX [Concomitant]
  3. DIAZEPAM [Concomitant]
     Active Substance: DIAZEPAM
  4. ATROPINE\DIPHENOXYLATE [Concomitant]
     Active Substance: ATROPINE\DIPHENOXYLATE
  5. NAPROXEN [Concomitant]
     Active Substance: NAPROXEN
  6. ONDANSETRON [Concomitant]
     Active Substance: ONDANSETRON
  7. OXAZAPEM [Concomitant]
  8. OXYCODONE [Concomitant]
     Active Substance: OXYCODONE
  9. VITAMIN C [Suspect]
     Active Substance: ASCORBIC ACID
  10. VITAMIN D3 [Concomitant]
     Active Substance: CHOLECALCIFEROL
  11. XGEVA [Concomitant]
     Active Substance: DENOSUMAB

REACTIONS (2)
  - Infection [None]
  - Surgery [None]

NARRATIVE: CASE EVENT DATE: 20221012
